FAERS Safety Report 7674088-9 (Version None)
Quarter: 2011Q3

REPORT INFORMATION
  Report Type: 
  Country: None (occurrence: None)
  Receive Date: 20110810
  Receipt Date: 20110803
  Transmission Date: 20111222
  Serious: Yes (Hospitalization)
  Sender: FDA-Public Use
  Company Number: US-SANOFI-AVENTIS-2011SA049844

PATIENT
  Sex: Female

DRUGS (3)
  1. LANTUS [Suspect]
     Dosage: DOSE:25 UNIT(S)
     Route: 058
  2. APIDRA [Suspect]
     Dosage: WITH EACH MEAL DOSE:10 UNIT(S)
     Route: 058
  3. OPTICLICK [Suspect]

REACTIONS (1)
  - DIABETIC NEUROPATHY [None]
